FAERS Safety Report 25050912 (Version 1)
Quarter: 2025Q1

REPORT INFORMATION
  Report Type: Report from Study
  Country: GB (occurrence: GB)
  Receive Date: 20250307
  Receipt Date: 20250307
  Transmission Date: 20250409
  Serious: Yes (Death, Other)
  Sender: SANDOZ
  Company Number: GB-002147023-NVSC2023GB138020

PATIENT
  Sex: Male

DRUGS (1)
  1. ERELZI [Suspect]
     Active Substance: ETANERCEPT-SZZS
     Indication: Rheumatoid arthritis
     Dosage: 50 MG, QW (50MG/1ML SOLUTION FOR INJECTION PRE-FILLED PENS)
     Route: 058

REACTIONS (5)
  - Death [Fatal]
  - Peripheral swelling [Unknown]
  - Pain [Unknown]
  - Product availability issue [Unknown]
  - Product dose omission issue [Unknown]
